FAERS Safety Report 22323128 (Version 2)
Quarter: 2024Q1

REPORT INFORMATION
  Report Type: Spontaneous
  Country: IT (occurrence: IT)
  Receive Date: 20230516
  Receipt Date: 20240102
  Transmission Date: 20240409
  Serious: Yes (Life-Threatening, Other)
  Sender: FDA-Public Use
  Company Number: IT-drreddys-LIT/ITL/23/0164533

PATIENT
  Age: 69 Year
  Sex: Female

DRUGS (2)
  1. PEMETREXED [Suspect]
     Active Substance: PEMETREXED
     Indication: Lung adenocarcinoma stage IV
     Dosage: UNK
     Route: 065
  2. PEMBROLIZUMAB [Suspect]
     Active Substance: PEMBROLIZUMAB
     Indication: Lung adenocarcinoma stage IV
     Dosage: UNK
     Route: 065

REACTIONS (8)
  - Cerebellar stroke [Unknown]
  - Thrombocytopenia [Unknown]
  - Sepsis [Unknown]
  - Hypereosinophilic syndrome [Recovered/Resolved]
  - Therapy partial responder [Unknown]
  - Dysarthria [Unknown]
  - Inflammatory marker increased [Unknown]
  - Ischaemia [Unknown]
